FAERS Safety Report 4927577-1 (Version None)
Quarter: 2006Q1

REPORT INFORMATION
  Report Type: 
  Country: None (occurrence: None)
  Receive Date: 20060228
  Receipt Date: 20051019
  Transmission Date: 20060701
  Serious: Yes (Hospitalization)
  Sender: FDA-Public Use
  Company Number: US-MERCK-0510USA08122

PATIENT
  Age: 34 Year
  Sex: Male
  Weight: 100 kg

DRUGS (12)
  1. VIOXX [Suspect]
     Indication: SPONDYLITIS
     Route: 048
     Dates: start: 20040401, end: 20040901
  2. IBUPROFENE MSD [Concomitant]
     Route: 065
  3. NEURONTIN [Concomitant]
     Route: 065
  4. FUROSEMIDE [Concomitant]
     Route: 065
  5. NAPROXEN [Concomitant]
     Route: 065
  6. NORVASC [Concomitant]
     Route: 065
  7. OXYCODONE [Concomitant]
     Route: 065
  8. TRAMADOLOR [Concomitant]
     Route: 065
  9. AUGMENTIN [Concomitant]
     Route: 065
  10. ACETAMINOPHEN [Concomitant]
     Route: 065
  11. NORTRIPTYLINE [Concomitant]
     Route: 065
  12. POTASSIUM (UNSPECIFIED) [Concomitant]
     Route: 065

REACTIONS (4)
  - ANEURYSM [None]
  - DEPRESSION [None]
  - DYSPEPSIA [None]
  - THROMBOSIS [None]
